FAERS Safety Report 11884148 (Version 1)
Quarter: 2015Q4

REPORT INFORMATION
  Report Type: Spontaneous
  Country: US (occurrence: None)
  Receive Date: 20151231
  Receipt Date: 20151231
  Transmission Date: 20160305
  Serious: Yes (Hospitalization)
  Sender: FDA-Public Use
  Company Number: None

PATIENT
  Age: 62 Year
  Sex: Male
  Weight: 94.7 kg

DRUGS (2)
  1. CARBOPLATIN. [Suspect]
     Active Substance: CARBOPLATIN
     Dates: end: 20151215
  2. TAXOL [Suspect]
     Active Substance: PACLITAXEL
     Dates: end: 20151215

REACTIONS (3)
  - Band neutrophil count decreased [None]
  - Blood culture positive [None]
  - Coronavirus test positive [None]

NARRATIVE: CASE EVENT DATE: 20151226
